FAERS Safety Report 7237565-0 (Version None)
Quarter: 2011Q1

REPORT INFORMATION
  Report Type: 
  Country: None (occurrence: None)
  Receive Date: 20110121
  Receipt Date: 20110112
  Transmission Date: 20110831
  Serious: Yes (Other)
  Sender: FDA-Public Use
  Company Number: JP-SANOFI-AVENTIS-2011SA003818

PATIENT
  Age: 53 Year
  Sex: Male

DRUGS (4)
  1. ELPLAT [Suspect]
     Indication: COLON CANCER
     Route: 041
     Dates: start: 20101214, end: 20101214
  2. 5-FU [Concomitant]
     Route: 041
     Dates: start: 20101214, end: 20101215
  3. CALCIUM LEVOFOLINATE [Concomitant]
     Indication: COLON CANCER
     Route: 041
     Dates: start: 20101214, end: 20101215
  4. 5-FU [Concomitant]
     Indication: COLON CANCER
     Route: 040
     Dates: start: 20101214, end: 20101215

REACTIONS (1)
  - LEUKOENCEPHALOPATHY [None]
